FAERS Safety Report 23069788 (Version 2)
Quarter: 2023Q4

REPORT INFORMATION
  Report Type: Spontaneous
  Country: DE (occurrence: DE)
  Receive Date: 20231016
  Receipt Date: 20231019
  Transmission Date: 20240109
  Serious: Yes (Other)
  Sender: FDA-Public Use
  Company Number: DE-BFARM-23005030

PATIENT
  Age: 30 Year
  Sex: Male
  Weight: 78 kg

DRUGS (6)
  1. OLANZAPINE [Suspect]
     Active Substance: OLANZAPINE
     Indication: Product used for unknown indication
     Dosage: 2.5MG TO 15MG; USUALLY 5 MG
     Route: 065
     Dates: start: 2019, end: 20230317
  2. OLANZAPINE [Suspect]
     Active Substance: OLANZAPINE
     Dosage: BEFORE 2019 AND AFTER MARCH 17, 2023
     Route: 065
  3. LEVOTHYROXINE SODIUM [Concomitant]
     Active Substance: LEVOTHYROXINE SODIUM
     Indication: Product used for unknown indication
     Dosage: UNK
     Route: 065
     Dates: start: 20230218
  4. OLANZAPINE [Suspect]
     Active Substance: OLANZAPINE
     Indication: Schizophrenia
     Dosage: UNK
     Route: 065
     Dates: start: 20221102
  5. OLANZAPINE [Suspect]
     Active Substance: OLANZAPINE
     Indication: Schizophrenia
     Dosage: 2,5MG BIS 15MG; MEISTENS 5 MG
     Route: 065
     Dates: start: 2019, end: 20230317
  6. OLANZAPINE [Suspect]
     Active Substance: OLANZAPINE
     Dosage: VOR 2019 UND NACH 17.03.2023
     Route: 065

REACTIONS (7)
  - Hypothyroidism [Not Recovered/Not Resolved]
  - Liver function test increased [Not Recovered/Not Resolved]
  - Fatigue [Unknown]
  - Sleep disorder [Unknown]
  - Hyperuricaemia [Unknown]
  - Hepatic steatosis [Unknown]
  - Apathy [Unknown]

NARRATIVE: CASE EVENT DATE: 20190901
